FAERS Safety Report 11701473 (Version 1)
Quarter: 2015Q4

REPORT INFORMATION
  Report Type: Spontaneous
  Country: US (occurrence: US)
  Receive Date: 20151105
  Receipt Date: 20151105
  Transmission Date: 20160304
  Serious: Yes (Hospitalization)
  Sender: FDA-Public Use
  Company Number: US-UNITED THERAPEUTICS-UNT-2015-012978

PATIENT
  Age: 66 Year
  Sex: Female
  Weight: 91.16 kg

DRUGS (1)
  1. REMODULIN [Suspect]
     Active Substance: TREPROSTINIL
     Indication: PULMONARY HYPERTENSION
     Dosage: 0.066 ?G/KG, CONTINUING
     Route: 058
     Dates: start: 20120927

REACTIONS (5)
  - Sepsis [Unknown]
  - Ear infection [Unknown]
  - Upper respiratory tract infection [Unknown]
  - Sinusitis [Unknown]
  - Deafness transitory [Unknown]

NARRATIVE: CASE EVENT DATE: 201510
